FAERS Safety Report 9139090 (Version 1)
Quarter: 2013Q1

REPORT INFORMATION
  Report Type: Report from Study
  Country: US (occurrence: US)
  Receive Date: 20130305
  Receipt Date: 20130305
  Transmission Date: 20140127
  Serious: Yes (Other)
  Sender: FDA-Public Use
  Company Number: US-US-EMD SERONO, INC.-7196325

PATIENT
  Sex: Female

DRUGS (1)
  1. REBIF [Suspect]
     Indication: PRODUCT USED FOR UNKNOWN INDICATION
     Route: 058
     Dates: start: 20110103

REACTIONS (6)
  - Rotator cuff syndrome [Unknown]
  - Limb injury [Unknown]
  - Balance disorder [Unknown]
  - Muscle spasticity [Unknown]
  - Injection site pain [Unknown]
  - Injection site bruising [Unknown]
